FAERS Safety Report 6296353-2 (Version None)
Quarter: 2009Q3

REPORT INFORMATION
  Report Type: 
  Country: None (occurrence: None)
  Receive Date: 20090804
  Receipt Date: 20090731
  Transmission Date: 20100115
  Serious: Yes (Life-Threatening)
  Sender: FDA-Public Use
  Company Number: PHHY2009IT30399

PATIENT
  Sex: Male

DRUGS (3)
  1. VOLTAREN [Suspect]
     Indication: TOOTH ABSCESS
     Dosage: 50 MG, ONCE/SINGLE
     Route: 048
     Dates: start: 20090719, end: 20090719
  2. TORADOL [Suspect]
     Indication: TOOTH ABSCESS
     Dosage: 30 MG/ML, ONCE/SINGLE
     Route: 030
     Dates: start: 20090719, end: 20090719
  3. AUGMENTAN ORAL [Suspect]
     Indication: TOOTH ABSCESS
     Dosage: (875 MG+ 125 MG) 1 POSOLOGIC UNIT
     Route: 048
     Dates: start: 20090719, end: 20090719

REACTIONS (4)
  - HYPERHIDROSIS [None]
  - HYPOTENSION [None]
  - PRURITUS GENERALISED [None]
  - URTICARIA [None]
